FAERS Safety Report 7783568-7 (Version None)
Quarter: 2011Q3

REPORT INFORMATION
  Report Type: 
  Country: None (occurrence: None)
  Receive Date: 20110928
  Receipt Date: 20110912
  Transmission Date: 20111222
  Serious: No
  Sender: FDA-Public Use
  Company Number: US-MYLANLABS-2011S1018031

PATIENT
  Age: 55 Year
  Sex: Female

DRUGS (4)
  1. VITAMIN D [Concomitant]
  2. LETROZOLE [Suspect]
     Indication: BREAST CANCER
     Route: 048
     Dates: start: 20110706, end: 20110804
  3. MAXZIDE [Concomitant]
  4. SYNTHROID [Concomitant]

REACTIONS (5)
  - DYSSTASIA [None]
  - PAIN [None]
  - BONE PAIN [None]
  - PAIN IN EXTREMITY [None]
  - LIMB DISCOMFORT [None]
